FAERS Safety Report 7345457-1 (Version None)
Quarter: 2011Q1

REPORT INFORMATION
  Report Type: 
  Country: None (occurrence: None)
  Receive Date: 20110310
  Receipt Date: 20110303
  Transmission Date: 20110831
  Serious: Yes (Other)
  Sender: FDA-Public Use
  Company Number: US-PFIZER INC-2011048165

PATIENT
  Sex: Male
  Weight: 90.703 kg

DRUGS (2)
  1. NEURONTIN [Suspect]
  2. LYRICA [Suspect]
     Indication: BACK PAIN
     Dosage: 150 MG, 1X/DAY
     Route: 048

REACTIONS (9)
  - DEPRESSION [None]
  - MALAISE [None]
  - DRY EYE [None]
  - INSOMNIA [None]
  - PAIN [None]
  - INTENTIONAL DRUG MISUSE [None]
  - DRY SKIN [None]
  - DRUG WITHDRAWAL SYNDROME [None]
  - EUPHORIC MOOD [None]
